FAERS Safety Report 8264774-4 (Version None)
Quarter: 2012Q2

REPORT INFORMATION
  Report Type: 
  Country: None (occurrence: None)
  Receive Date: 20120404
  Receipt Date: 20120327
  Transmission Date: 20120825
  Serious: Yes (Other)
  Sender: FDA-Public Use
  Company Number: AUR-APL-2012-00818

PATIENT
  Age: 55 Year
  Sex: Female

DRUGS (2)
  1. LEVOXYL [Concomitant]
  2. SIMVASTATIN [Suspect]
     Indication: BLOOD CHOLESTEROL
     Dosage: 20 MG (20 MG,1 IN 1 D),ORAL
     Route: 048
     Dates: start: 20111020

REACTIONS (3)
  - PRODUCT SUBSTITUTION ISSUE [None]
  - LOW DENSITY LIPOPROTEIN INCREASED [None]
  - PRODUCT QUALITY ISSUE [None]
